FAERS Safety Report 7211892-5 (Version None)
Quarter: 2011Q1

REPORT INFORMATION
  Report Type: 
  Country: None (occurrence: None)
  Receive Date: 20110106
  Receipt Date: 20101229
  Transmission Date: 20110831
  Serious: Yes (Hospitalization)
  Sender: FDA-Public Use
  Company Number: US-BIOGENIDEC-2010BI044293

PATIENT
  Age: 59 Year
  Sex: Female

DRUGS (1)
  1. AVONEX [Suspect]
     Indication: MULTIPLE SCLEROSIS
     Route: 030
     Dates: start: 19970825

REACTIONS (11)
  - ALOPECIA [None]
  - DEPRESSION [None]
  - THYROID DISORDER [None]
  - WEIGHT INCREASED [None]
  - FEELING HOT [None]
  - PALPITATIONS [None]
  - SKIN DISORDER [None]
  - FEELING COLD [None]
  - HYPERTENSION [None]
  - OEDEMA PERIPHERAL [None]
  - MUSCULAR WEAKNESS [None]
